FAERS Safety Report 19808595 (Version 1)
Quarter: 2021Q3

REPORT INFORMATION
  Report Type: Spontaneous
  Country: US (occurrence: US)
  Receive Date: 20210908
  Receipt Date: 20210908
  Transmission Date: 20211014
  Serious: Yes (Hospitalization, Other)
  Sender: FDA-Public Use
  Company Number: US-SLATE RUN PHARMACEUTICALS-21US000663

PATIENT

DRUGS (1)
  1. VANCOMYCIN HYDROCHLORIDE USP [Suspect]
     Active Substance: VANCOMYCIN HYDROCHLORIDE
     Indication: SUBDURAL ABSCESS
     Dosage: UNK
     Route: 042

REACTIONS (9)
  - Oedema [Recovered/Resolved]
  - Meningitis [Recovered/Resolved]
  - Seizure [Recovered/Resolved]
  - Muscular weakness [Recovered/Resolved]
  - Encephalitis [Recovered/Resolved]
  - Drug level below therapeutic [Unknown]
  - Mycoplasma infection [Recovered/Resolved]
  - Brain empyema [Recovered/Resolved]
  - Aphasia [Recovered/Resolved]
